FAERS Safety Report 5091566-X (Version None)
Quarter: 2006Q3

REPORT INFORMATION
  Report Type: 
  Country: None (occurrence: None)
  Receive Date: 20060824
  Receipt Date: 20060807
  Transmission Date: 20061208
  Serious: No
  Sender: FDA-Public Use
  Company Number: TPA2006A01296

PATIENT
  Age: 40 Year
  Sex: Female
  Weight: 86.1834 kg

DRUGS (5)
  1. ROZEREM [Suspect]
     Indication: INSOMNIA
     Dosage: SEE IMAGE, PER ORAL
     Route: 048
     Dates: start: 20060609, end: 20060709
  2. ROZEREM [Suspect]
     Indication: INSOMNIA
     Dosage: SEE IMAGE, PER ORAL
     Route: 048
     Dates: start: 20060709
  3. THYROID TAB [Concomitant]
  4. LEXAPRO [Concomitant]
  5. METFORMIN (METFORMIN ) [Concomitant]

REACTIONS (1)
  - INCORRECT DOSE ADMINISTERED [None]
